APPROVED DRUG PRODUCT: IBUPROFEN
Active Ingredient: IBUPROFEN
Strength: 100MG
Dosage Form/Route: TABLET;ORAL
Application: A076741 | Product #001
Applicant: LNK INTERNATIONAL INC
Approved: Jun 17, 2004 | RLD: No | RS: No | Type: DISCN